FAERS Safety Report 6993718-8 (Version None)
Quarter: 2010Q3

REPORT INFORMATION
  Report Type: 
  Country: None (occurrence: None)
  Receive Date: 20100917
  Receipt Date: 20090911
  Transmission Date: 20110219
  Serious: Yes (Hospitalization)
  Sender: FDA-Public Use
  Company Number: US-SANOFI-AVENTIS-2010SA054623

PATIENT
  Age: 75 Year
  Sex: Female
  Weight: 59.42 kg

DRUGS (23)
  1. FUROSEMIDE [Suspect]
     Route: 048
     Dates: start: 20040401, end: 20090911
  2. CONTRAST MEDIA [Suspect]
     Route: 042
     Dates: start: 20090910, end: 20090910
  3. GEMCITABINE [Suspect]
     Route: 042
     Dates: start: 20090803
  4. CARBOPLATIN [Suspect]
     Dosage: 2 AUC;QW; IV
     Route: 042
     Dates: start: 20090803
  5. PLAVIX [Concomitant]
     Indication: ANTICOAGULANT THERAPY
     Route: 048
     Dates: start: 20070101
  6. ASPIRIN [Concomitant]
     Indication: ANTICOAGULANT THERAPY
     Dates: start: 20090804, end: 20090830
  7. ASPIRIN [Concomitant]
     Dates: start: 20090901, end: 20090907
  8. ASPIRIN [Concomitant]
  9. DIGOXIN [Concomitant]
     Indication: CARDIOMYOPATHY
     Dates: start: 20041101
  10. TOPROL-XL [Concomitant]
     Indication: HYPERTENSION
     Dates: start: 20051101
  11. POTASSIUM [Concomitant]
     Indication: PROPHYLAXIS
     Dates: start: 20041101
  12. SLO-MAG [Concomitant]
     Indication: PROPHYLAXIS
     Route: 048
     Dates: start: 20070320
  13. GABAPENTIN [Concomitant]
     Indication: NEUROPATHY PERIPHERAL
     Dates: start: 20070725
  14. MULTI-VITAMINS [Concomitant]
     Indication: PROPHYLAXIS
     Route: 048
     Dates: start: 19840101
  15. METHADONE [Concomitant]
     Indication: AXILLARY PAIN
     Dates: start: 20071119
  16. CYANOCOBALAMIN [Concomitant]
     Indication: VITAMIN B12 DEFICIENCY
     Route: 058
     Dates: start: 20071214
  17. ALOXI [Concomitant]
     Indication: PREMEDICATION
     Route: 042
     Dates: start: 20090803
  18. ZANTAC [Concomitant]
     Indication: PREMEDICATION
     Route: 042
     Dates: start: 20090803
  19. SYNTHROID [Concomitant]
     Indication: HYPOTHYROIDISM
     Route: 048
     Dates: start: 20090810
  20. ARANESP [Concomitant]
     Route: 058
     Dates: start: 20090810
  21. ARIXTRA [Concomitant]
     Route: 058
     Dates: start: 20090828
  22. FENTANYL CITRATE [Concomitant]
     Dates: start: 20090826
  23. VITAMIN D [Concomitant]

REACTIONS (2)
  - ORTHOSTATIC HYPOTENSION [None]
  - SYNCOPE [None]
